FAERS Safety Report 20985396 (Version 2)
Quarter: 2024Q1

REPORT INFORMATION
  Report Type: Report from Study
  Country: US (occurrence: US)
  Receive Date: 20220621
  Receipt Date: 20240207
  Transmission Date: 20240409
  Serious: Yes (Other)
  Sender: FDA-Public Use
  Company Number: US-NOVARTISPH-NVSC2022US137550

PATIENT
  Sex: Female

DRUGS (1)
  1. ENTRESTO [Suspect]
     Active Substance: SACUBITRIL\VALSARTAN
     Indication: Product used for unknown indication
     Dosage: 1 DOSAGE FORM, BID  (97/103 MG)
     Route: 048
     Dates: start: 202104

REACTIONS (3)
  - Type 2 diabetes mellitus [Unknown]
  - Illness [Recovering/Resolving]
  - Fluid retention [Recovering/Resolving]
